FAERS Safety Report 8609522-0 (Version None)
Quarter: 2012Q3

REPORT INFORMATION
  Report Type: 
  Country: None (occurrence: None)
  Receive Date: 20120821
  Receipt Date: 20120809
  Transmission Date: 20120928
  Serious: Yes (Hospitalization)
  Sender: FDA-Public Use
  Company Number: US-PFIZER INC-2012194625

PATIENT
  Age: 52 Year
  Sex: Female

DRUGS (2)
  1. TRIPTORELIN PAMOATE [Suspect]
     Indication: BREAST CANCER
     Dosage: UNK
     Dates: start: 20090730, end: 20100115
  2. EXEMESTANE [Suspect]
     Indication: BREAST CANCER
     Dosage: UNK
     Dates: start: 20090910, end: 20120715

REACTIONS (1)
  - SUICIDE ATTEMPT [None]
